FAERS Safety Report 9127546 (Version 1)
Quarter: 2013Q1

REPORT INFORMATION
  Report Type: Spontaneous
  Country: FR (occurrence: FR)
  Receive Date: 20130122
  Receipt Date: 20130122
  Transmission Date: 20140127
  Serious: Yes (Other)
  Sender: FDA-Public Use
  Company Number: FR-TEVA-382017USA

PATIENT
  Sex: Male

DRUGS (3)
  1. TREANDA [Suspect]
     Indication: NODAL MARGINAL ZONE B-CELL LYMPHOMA
     Route: 041
     Dates: start: 20130108
  2. TREANDA [Suspect]
     Route: 041
     Dates: start: 20130109
  3. RITUXIMAB [Suspect]
     Dates: start: 20130107

REACTIONS (3)
  - Encephalitis [Unknown]
  - Hypoalbuminaemia [Unknown]
  - CSF protein increased [Unknown]
